FAERS Safety Report 6249655-X (Version None)
Quarter: 2009Q2

REPORT INFORMATION
  Report Type: 
  Country: None (occurrence: None)
  Receive Date: 20090629
  Receipt Date: 20090617
  Transmission Date: 20091009
  Serious: Yes (Disabling)
  Sender: FDA-Public Use
  Company Number: DE-PFIZER INC-2009202918

PATIENT

DRUGS (2)
  1. LYRICA [Suspect]
     Indication: POST-TRAUMATIC HEADACHE
     Dosage: 25 MG IN THE MORNING, 125 IN THE EVENING
     Route: 048
  2. LYRICA [Suspect]
     Dosage: 25 MG IN THE MORNING, 75 MG IN THE EVENING
     Route: 048

REACTIONS (4)
  - EUPHORIC MOOD [None]
  - FATIGUE [None]
  - RESTLESSNESS [None]
  - WITHDRAWAL SYNDROME [None]
